FAERS Safety Report 4515712-9 (Version None)
Quarter: 2004Q4

REPORT INFORMATION
  Report Type: 
  Country: None (occurrence: None)
  Receive Date: 20041130
  Receipt Date: 20041115
  Transmission Date: 20050328
  Serious: Yes (Death)
  Sender: FDA-Public Use
  Company Number: 2004S1003415

PATIENT
  Age: 30 Year

DRUGS (3)
  1. METHAMPHETAMINE HCL [Suspect]
     Dates: end: 20030101
  2. AMITRIPTYLINE HCL [Suspect]
     Dosage: ORAL
     Route: 048
     Dates: end: 20030101
  3. COCAINE [Suspect]

REACTIONS (1)
  - COMPLETED SUICIDE [None]
